FAERS Safety Report 25428009 (Version 1)
Quarter: 2025Q2

REPORT INFORMATION
  Report Type: Spontaneous
  Country: US (occurrence: None)
  Receive Date: 20250611
  Receipt Date: 20250611
  Transmission Date: 20250716
  Serious: Yes (Death)
  Sender: FDA-CTU
  Company Number: None

PATIENT
  Sex: Female

DRUGS (8)
  1. POMALYST [Suspect]
     Active Substance: POMALIDOMIDE
     Indication: Breast cancer female
     Dosage: FREQUENCY : DAILY;?
     Route: 048
     Dates: start: 20240326
  2. AZELASTINE SPR0 [Concomitant]
  3. CINNAMON CAP [Concomitant]
  4. COMBIGAN SOL [Concomitant]
  5. COMBIGAN SOL [Concomitant]
  6. OMEPRAZOLE TAB [Concomitant]
  7. XGEVA [Concomitant]
     Active Substance: DENOSUMAB
  8. ZOLEDRONIC ACID [Concomitant]
     Active Substance: ZOLEDRONIC ACID

REACTIONS (1)
  - Death [None]
